FAERS Safety Report 14259626 (Version 2)
Quarter: 2017Q4

REPORT INFORMATION
  Report Type: Not Available
  Country: CA (occurrence: CA)
  Receive Date: 20171207
  Receipt Date: 20171207
  Transmission Date: 20180321
  Serious: Yes (Life-Threatening, Hospitalization, Other)
  Sender: FDA-Public Use
  Company Number: CA-AKORN-74367

PATIENT
  Age: 12 Day
  Sex: Male
  Weight: 2 kg

DRUGS (1)
  1. COSOPT [Suspect]
     Active Substance: DORZOLAMIDE HYDROCHLORIDE\TIMOLOL MALEATE

REACTIONS (4)
  - Hypothermia [None]
  - Respiratory failure [None]
  - Hypotension [None]
  - Hypotonia [None]
